FAERS Safety Report 6884034-3 (Version None)
Quarter: 2010Q3

REPORT INFORMATION
  Report Type: 
  Country: None (occurrence: None)
  Receive Date: 20100729
  Receipt Date: 20100716
  Transmission Date: 20110219
  Serious: Yes (Hospitalization, Other)
  Sender: FDA-Public Use
  Company Number: PHEH2006US15259

PATIENT
  Sex: Male

DRUGS (4)
  1. AREDIA [Suspect]
     Dosage: UNK MG, UNK
     Dates: end: 20060801
  2. ZOMETA [Suspect]
     Indication: MULTIPLE MYELOMA
     Dosage: UNK
     Route: 042
  3. CHEMOTHERAPEUTICS NOS [Concomitant]
     Dosage: UNK
     Dates: start: 20001201
  4. CENTRUM [Concomitant]

REACTIONS (91)
  - ABNORMAL FAECES [None]
  - ABSCESS DRAINAGE [None]
  - ANAEMIA [None]
  - ANXIETY [None]
  - APNOEA [None]
  - ARTHRALGIA [None]
  - ARTHRITIS [None]
  - ARTHROPATHY [None]
  - ASTHENIA [None]
  - ATRIAL FIBRILLATION [None]
  - BACK PAIN [None]
  - BLOOD PRESSURE DECREASED [None]
  - BONE DISORDER [None]
  - BONE PAIN [None]
  - BRONCHIAL SECRETION RETENTION [None]
  - BUNDLE BRANCH BLOCK LEFT [None]
  - CARDIAC FAILURE CONGESTIVE [None]
  - CEREBRAL ATROPHY [None]
  - CEREBROVASCULAR ACCIDENT [None]
  - CERVICAL CORD COMPRESSION [None]
  - CHEST PAIN [None]
  - CHONDROMALACIA [None]
  - CHRONIC OBSTRUCTIVE PULMONARY DISEASE [None]
  - CHRONIC SINUSITIS [None]
  - CONFUSIONAL STATE [None]
  - COUGH [None]
  - DECREASED INTEREST [None]
  - DENTAL CARIES [None]
  - DENTAL PULP DISORDER [None]
  - DEVICE MALFUNCTION [None]
  - DIPLOPIA [None]
  - DIZZINESS [None]
  - DYSPNOEA [None]
  - ELECTROCARDIOGRAM ST SEGMENT DEPRESSION [None]
  - ENCEPHALOPATHY [None]
  - ENDODONTIC PROCEDURE [None]
  - GENERAL PHYSICAL HEALTH DETERIORATION [None]
  - HAEMOPTYSIS [None]
  - HEADACHE [None]
  - HIATUS HERNIA [None]
  - HYPERHIDROSIS [None]
  - HYPOAESTHESIA [None]
  - ILEUS [None]
  - IMPLANTABLE DEFIBRILLATOR INSERTION [None]
  - INTERVERTEBRAL DISC COMPRESSION [None]
  - KNEE OPERATION [None]
  - KYPHOSIS [None]
  - LUDWIG ANGINA [None]
  - LUNG INFILTRATION [None]
  - LYMPHADENOPATHY [None]
  - MASTICATION DISORDER [None]
  - MENISCUS LESION [None]
  - MENTAL DISORDER [None]
  - MULTIPLE MYELOMA [None]
  - MUSCLE SPASMS [None]
  - MUSCULOSKELETAL PAIN [None]
  - MYASTHENIA GRAVIS [None]
  - NECK PAIN [None]
  - NEUROPATHY PERIPHERAL [None]
  - ORAL PAIN [None]
  - OSTEOARTHRITIS [None]
  - OSTEOMYELITIS [None]
  - OSTEONECROSIS OF JAW [None]
  - OSTEOPENIA [None]
  - OVERDOSE [None]
  - PAIN [None]
  - PAIN IN EXTREMITY [None]
  - PAIN IN JAW [None]
  - PARAESTHESIA [None]
  - PYREXIA [None]
  - RADICULOPATHY [None]
  - ROTATOR CUFF SYNDROME [None]
  - SENSITIVITY OF TEETH [None]
  - SEPSIS [None]
  - SINUS DISORDER [None]
  - SINUS TACHYCARDIA [None]
  - SPEECH REHABILITATION [None]
  - SPINAL COMPRESSION FRACTURE [None]
  - SPINAL FUSION ACQUIRED [None]
  - SPINAL OSTEOARTHRITIS [None]
  - SPUTUM DISCOLOURED [None]
  - SUBCUTANEOUS NODULE [None]
  - SYNOVITIS [None]
  - TOOTH EXTRACTION [None]
  - TOOTH FRACTURE [None]
  - TRANSURETHRAL PROSTATECTOMY [None]
  - UNRESPONSIVE TO STIMULI [None]
  - URINARY RETENTION [None]
  - URINARY TRACT INFECTION [None]
  - VENTRICULAR EXTRASYSTOLES [None]
  - VISION BLURRED [None]
